FAERS Safety Report 8133421-4 (Version None)
Quarter: 2012Q1

REPORT INFORMATION
  Report Type: 
  Country: None (occurrence: None)
  Receive Date: 20120213
  Receipt Date: 20120202
  Transmission Date: 20120608
  Serious: Yes (Death)
  Sender: FDA-Public Use
  Company Number: JP-AMGEN-JPNSP2012008936

PATIENT
  Age: 76 Year
  Sex: Male

DRUGS (1)
  1. ROMIPLATE [Suspect]
     Indication: IDIOPATHIC THROMBOCYTOPENIC PURPURA
     Dosage: 1 MUG/KG, ONE TIME DOSE
     Route: 058

REACTIONS (3)
  - DEATH [None]
  - PULMONARY HAEMORRHAGE [None]
  - PLATELET COUNT DECREASED [None]
